FAERS Safety Report 23616956 (Version 1)
Quarter: 2024Q1

REPORT INFORMATION
  Report Type: Spontaneous
  Country: IT (occurrence: IT)
  Receive Date: 20240311
  Receipt Date: 20240311
  Transmission Date: 20240410
  Serious: Yes (Other)
  Sender: FDA-Public Use
  Company Number: IT-ADIENNEP-2024AD000117

PATIENT
  Sex: Male

DRUGS (6)
  1. BUSULFAN [Suspect]
     Active Substance: BUSULFAN
     Indication: Allogenic stem cell transplantation
     Dosage: 3,2 MG/KG/DIE
     Route: 065
     Dates: start: 2023, end: 2023
  2. CYCLOSPORINE [Suspect]
     Active Substance: CYCLOSPORINE
     Indication: Prophylaxis against graft versus host disease
     Dosage: UNK
     Route: 065
  3. FLUDARABINE [Suspect]
     Active Substance: FLUDARABINE PHOSPHATE
     Indication: Allogenic stem cell transplantation
     Dosage: 50 MG/M2/DIE FROM DAY - 5 TO - 3
     Route: 065
     Dates: start: 2023, end: 2023
  4. METHOTREXATE [Suspect]
     Active Substance: METHOTREXATE
     Indication: Prophylaxis against graft versus host disease
     Dosage: UNK
     Route: 065
  5. THIOTEPA [Suspect]
     Active Substance: THIOTEPA
     Indication: Allogenic stem cell transplantation
     Dosage: 5 MG/KG/DIE ON DAY - 7 AND - 6
     Route: 065
     Dates: start: 2023, end: 2023
  6. THYMOGLOBULINE [Suspect]
     Active Substance: LAPINE T-LYMPHOCYTE IMMUNE GLOBULIN
     Indication: Prophylaxis against graft versus host disease
     Dosage: UNK
     Route: 065

REACTIONS (6)
  - Acute graft versus host disease in skin [Recovered/Resolved]
  - Pseudomonal bacteraemia [Recovered/Resolved]
  - Renal impairment [Unknown]
  - Vanishing bile duct syndrome [Unknown]
  - Acute graft versus host disease in liver [Unknown]
  - Pyrexia [Recovered/Resolved]
